FAERS Safety Report 8230781-0 (Version None)
Quarter: 2012Q1

REPORT INFORMATION
  Report Type: 
  Country: None (occurrence: None)
  Receive Date: 20120323
  Receipt Date: 20120322
  Transmission Date: 20120608
  Serious: Yes (Hospitalization, Other)
  Sender: FDA-Public Use
  Company Number: CA-PFIZER INC-2012074501

PATIENT
  Sex: Male

DRUGS (3)
  1. CELEBREX [Suspect]
     Indication: OSTEOARTHRITIS
     Dosage: 200 MG, 1X/DAY
     Route: 048
  2. CELEBREX [Suspect]
     Indication: PAIN
  3. ATASOL [Concomitant]
     Indication: PAIN
     Dosage: 30 MG, AS NEEDED
     Route: 048

REACTIONS (4)
  - VIITH NERVE PARALYSIS [None]
  - ISCHAEMIC STROKE [None]
  - DIZZINESS [None]
  - HEMIPARESIS [None]
